FAERS Safety Report 16652489 (Version 1)
Quarter: 2019Q3

REPORT INFORMATION
  Report Type: Spontaneous
  Country: US (occurrence: US)
  Receive Date: 20190731
  Receipt Date: 20190731
  Transmission Date: 20191004
  Serious: Yes (Hospitalization)
  Sender: FDA-Public Use
  Company Number: None

PATIENT
  Age: 64 Year
  Sex: Female

DRUGS (22)
  1. ATORVASTATIN [Concomitant]
     Active Substance: ATORVASTATIN
  2. PROLIA [Concomitant]
     Active Substance: DENOSUMAB
  3. FUROSEMIDE. [Concomitant]
     Active Substance: FUROSEMIDE
  4. NOVOLOG [Concomitant]
     Active Substance: INSULIN ASPART
  5. PREDNISONE. [Concomitant]
     Active Substance: PREDNISONE
  6. FISH OIL [Concomitant]
     Active Substance: FISH OIL
  7. AMLODIPINE [Concomitant]
     Active Substance: AMLODIPINE BESYLATE
  8. LEVOTHYROXINE. [Concomitant]
     Active Substance: LEVOTHYROXINE
  9. VITAMIN D [Concomitant]
     Active Substance: VITAMIN D NOS
  10. CALCITRIOL. [Concomitant]
     Active Substance: CALCITRIOL
  11. MONTELUKAST [Concomitant]
     Active Substance: MONTELUKAST SODIUM
  12. PROBIOTIC [Concomitant]
     Active Substance: PROBIOTICS NOS
  13. GEMFIBROZIL. [Concomitant]
     Active Substance: GEMFIBROZIL
  14. LOSARTAN/HCT [Concomitant]
     Active Substance: HYDROCHLOROTHIAZIDE\LOSARTAN POTASSIUM
  15. BAYER ASA 325 [Concomitant]
  16. ALLOPURINOL. [Concomitant]
     Active Substance: ALLOPURINOL
  17. PROCRIT [Suspect]
     Active Substance: ERYTHROPOIETIN
     Indication: ANAEMIA OF CHRONIC DISEASE
     Dosage: ?          OTHER FREQUENCY:WEEKLY;?
     Route: 058
     Dates: start: 20190129
  18. ISOSORB MONO TAB [Concomitant]
  19. CLOPIDOGREL [Concomitant]
     Active Substance: CLOPIDOGREL BISULFATE
  20. IRON [Concomitant]
     Active Substance: IRON
  21. HYDROXYCHLOR TAB [Concomitant]
  22. CARVEDILOL. [Concomitant]
     Active Substance: CARVEDILOL

REACTIONS (1)
  - Intestinal haemorrhage [None]

NARRATIVE: CASE EVENT DATE: 20190705
